FAERS Safety Report 14091719 (Version 1)
Quarter: 2017Q4

REPORT INFORMATION
  Report Type: Report from Study
  Country: FR (occurrence: FR)
  Receive Date: 20171016
  Receipt Date: 20171016
  Transmission Date: 20180321
  Serious: Yes (Other)
  Sender: FDA-Public Use
  Company Number: FR-ROCHE-2005077

PATIENT

DRUGS (3)
  1. VEMURAFENIB. [Suspect]
     Active Substance: VEMURAFENIB
     Indication: ERDHEIM-CHESTER DISEASE
     Route: 065
  2. COBIMETINIB. [Suspect]
     Active Substance: COBIMETINIB
     Indication: ERDHEIM-CHESTER DISEASE
     Route: 065
  3. DABRAFENIB [Suspect]
     Active Substance: DABRAFENIB
     Indication: ERDHEIM-CHESTER DISEASE
     Route: 065

REACTIONS (26)
  - Dermatitis acneiform [Unknown]
  - Squamous cell carcinoma of skin [Unknown]
  - Melanocytic naevus [Unknown]
  - Deep vein thrombosis [Unknown]
  - Hypertriglyceridaemia [Unknown]
  - Actinic keratosis [Unknown]
  - Photosensitivity reaction [Unknown]
  - Basal cell carcinoma [Unknown]
  - Bowen^s disease [Unknown]
  - Renal vasculitis [Unknown]
  - Tuberculosis [Unknown]
  - Vomiting [Unknown]
  - Neutropenia [Unknown]
  - Hypersensitivity [Unknown]
  - Keratoacanthoma [Unknown]
  - Dermatitis allergic [Unknown]
  - Depression [Unknown]
  - Sarcoidosis [Unknown]
  - Rhabdomyolysis [Unknown]
  - Off label use [Unknown]
  - Arthralgia [Unknown]
  - Drug reaction with eosinophilia and systemic symptoms [Unknown]
  - Intentional product use issue [Unknown]
  - Nausea [Unknown]
  - Keratosis pilaris [Unknown]
  - Diarrhoea [Unknown]
